FAERS Safety Report 18249212 (Version 27)
Quarter: 2024Q4

REPORT INFORMATION
  Report Type: Report from Study
  Country: AT (occurrence: AT)
  Receive Date: 20200910
  Receipt Date: 20241223
  Transmission Date: 20250115
  Serious: Yes (Hospitalization, Other)
  Sender: ROCHE
  Company Number: None

PATIENT
  Age: 62 Year
  Sex: Female
  Weight: 80.4 kg

DRUGS (71)
  1. XELODA [Suspect]
     Active Substance: CAPECITABINE
     Indication: Breast cancer metastatic
     Dosage: MOST RECENT DOSE PRIOR TO THE EVENT  PORT A CATH INFECTION: 08/JAN/2020
     Route: 048
     Dates: start: 20191002, end: 20200107
  2. XELODA [Suspect]
     Active Substance: CAPECITABINE
     Route: 048
     Dates: start: 20200108, end: 20200421
  3. XELODA [Suspect]
     Active Substance: CAPECITABINE
     Dosage: OTHER DAILY FOR 2 WEEKS THEN PAUSE FOR 1 WEEK
     Route: 042
     Dates: start: 20201230, end: 20210203
  4. KADCYLA [Suspect]
     Active Substance: ADO-TRASTUZUMAB EMTANSINE
     Indication: Breast cancer metastatic
     Route: 042
     Dates: start: 20190306, end: 20190909
  5. HERCEPTIN [Suspect]
     Active Substance: TRASTUZUMAB
     Indication: Breast cancer metastatic
     Dosage: MOST RECENT DOSE PRIOR TO THE EVENTS: 10/AUG/2017
     Route: 041
     Dates: start: 20170224, end: 20170224
  6. HERCEPTIN [Suspect]
     Active Substance: TRASTUZUMAB
     Route: 042
     Dates: start: 20170519, end: 20170519
  7. HERCEPTIN [Suspect]
     Active Substance: TRASTUZUMAB
     Route: 042
     Dates: start: 20170410, end: 20170427
  8. HERCEPTIN [Suspect]
     Active Substance: TRASTUZUMAB
     Route: 042
     Dates: start: 20170609, end: 20170630
  9. HERCEPTIN [Suspect]
     Active Substance: TRASTUZUMAB
     Route: 042
     Dates: start: 20170720, end: 20170720
  10. HERCEPTIN [Suspect]
     Active Substance: TRASTUZUMAB
     Route: 042
     Dates: start: 20170810, end: 20190213
  11. PERJETA [Suspect]
     Active Substance: PERTUZUMAB
     Indication: Breast cancer metastatic
     Dosage: MOST RECENT DOSE PRIOR TO THE EVENT WORSENING OF BRAIN METASTASES: 17/MAR/2017?MOST RECENT DOSE PRIO
     Route: 042
     Dates: start: 20170224, end: 20170224
  12. PERJETA [Suspect]
     Active Substance: PERTUZUMAB
     Route: 042
     Dates: start: 20200422, end: 20200615
  13. PERJETA [Suspect]
     Active Substance: PERTUZUMAB
     Dosage: MILIGRAMS OTHER FREQUENCY VARIED OVER TIME(FROM 3 WEEKS TO 24DAYS)
     Route: 042
     Dates: start: 20170317, end: 20190213
  14. TYKERB [Suspect]
     Active Substance: LAPATINIB DITOSYLATE
     Indication: Breast cancer metastatic
     Dosage: MOST RECENT DOSE PRIOR TO THE EVENT PORT A CATH INFECTION: 08/JAN/2020
     Route: 048
     Dates: start: 20191002, end: 20200107
  15. TYKERB [Suspect]
     Active Substance: LAPATINIB DITOSYLATE
     Route: 048
     Dates: start: 20200108, end: 20200421
  16. NAVELBINE [Suspect]
     Active Substance: VINORELBINE TARTRATE
     Indication: Breast cancer metastatic
     Route: 042
     Dates: end: 20200722
  17. BLEOMYCIN [Suspect]
     Active Substance: BLEOMYCIN SULFATE
     Indication: Breast cancer metastatic
     Dosage: DRUG WAS DISCONTINUED AS PLANNED NUMBER OF CYCLES COMPLETED.
     Route: 042
  18. BLEOMYCIN [Suspect]
     Active Substance: BLEOMYCIN SULFATE
     Dosage: DRUG WAS DISCONTINUED AS PLANNED NUMBER OF CYCLES COMPLETED.
     Route: 042
     Dates: start: 20210105, end: 20210105
  19. TAXOTERE [Suspect]
     Active Substance: DOCETAXEL
     Indication: Breast cancer metastatic
     Dosage: MOST RECENT DOSE PRIOR TO THE EVENTS: 09/JUN/2017
     Route: 042
     Dates: start: 20170224, end: 20170317
  20. TAXOTERE [Suspect]
     Active Substance: DOCETAXEL
     Route: 042
     Dates: start: 20170410, end: 20170427
  21. TAXOTERE [Suspect]
     Active Substance: DOCETAXEL
     Route: 042
     Dates: start: 20170519, end: 20170519
  22. TAXOTERE [Suspect]
     Active Substance: DOCETAXEL
     Route: 042
     Dates: start: 20170609, end: 20170630
  23. TAXOTERE [Suspect]
     Active Substance: DOCETAXEL
     Route: 042
     Dates: start: 20210317, end: 20210428
  24. FASLODEX [Suspect]
     Active Substance: FULVESTRANT
     Indication: Breast cancer metastatic
     Dosage: MOST RECENT DOSE PRIOR TO THE EVENT PORT A CATH INFECTION: 16/NOV/2017
     Route: 058
     Dates: start: 20171002, end: 20171115
  25. FASLODEX [Suspect]
     Active Substance: FULVESTRANT
     Dosage: MONTHLY
     Route: 058
     Dates: start: 20171116, end: 20191001
  26. EDOXABAN TOSYLATE [Concomitant]
     Active Substance: EDOXABAN TOSYLATE
     Route: 065
     Dates: start: 20191120, end: 20200608
  27. NERIFORTE [Concomitant]
     Indication: Skin fissures
     Route: 061
     Dates: start: 20200430, end: 20200515
  28. FENTANYL [Concomitant]
     Active Substance: FENTANYL
     Route: 062
     Dates: start: 20200515
  29. OLIVE OIL [Concomitant]
     Active Substance: OLIVE OIL
     Indication: Paronychia
     Route: 065
     Dates: start: 20191002, end: 20200512
  30. ACETAMINOPHEN [Concomitant]
     Active Substance: ACETAMINOPHEN
     Route: 065
     Dates: start: 20200506
  31. CARBOXYMETHYLCELLULOSE SODIUM [Concomitant]
     Active Substance: CARBOXYMETHYLCELLULOSE SODIUM
  32. LORAZEPAM [Concomitant]
     Active Substance: LORAZEPAM
  33. DROPERIDOL [Concomitant]
     Active Substance: DROPERIDOL
  34. ZOFRAN [Concomitant]
     Active Substance: ONDANSETRON HYDROCHLORIDE
     Route: 065
     Dates: start: 20200506
  35. PREGABALIN [Concomitant]
     Active Substance: PREGABALIN
     Route: 065
     Dates: start: 20190821, end: 20210616
  36. PASPERTIN [Concomitant]
     Route: 065
     Dates: start: 20200506
  37. LEVOFLOXACIN [Concomitant]
     Active Substance: LEVOFLOXACIN
     Route: 065
     Dates: start: 20200506, end: 20200512
  38. NOVALGIN (AUSTRIA) [Concomitant]
     Route: 065
     Dates: start: 20170329, end: 20180807
  39. KCL [Concomitant]
     Active Substance: POTASSIUM CHLORIDE
     Route: 048
     Dates: start: 20170429, end: 20190305
  40. BETAISODONA [Concomitant]
     Active Substance: POVIDONE-IODINE
     Indication: Skin fissures
     Dosage: ONGOING = NOT CHECKED
     Route: 065
     Dates: start: 20200430, end: 20200515
  41. EUTHYROX [Concomitant]
     Active Substance: LEVOTHYROXINE SODIUM
     Route: 048
     Dates: start: 20170303, end: 20210615
  42. KALIORAL [Concomitant]
     Route: 065
     Dates: start: 20200427, end: 20200428
  43. SILICON [Concomitant]
     Active Substance: SILICON
     Indication: Skin fissures
     Dosage: ONGOING = NOT CHECKED
     Route: 065
     Dates: start: 20200521, end: 20200602
  44. TAZOBACTAM [Concomitant]
     Active Substance: TAZOBACTAM
     Indication: Streptococcal sepsis
     Route: 065
     Dates: start: 20200423, end: 20200504
  45. LEUKICHTAN (AUSTRIA) [Concomitant]
     Route: 065
     Dates: start: 20200430, end: 20200515
  46. VITAMIN C [Concomitant]
     Active Substance: ASCORBIC ACID
  47. DEXAMETHASONE [Concomitant]
     Active Substance: DEXAMETHASONE
     Indication: Brain oedema
     Dates: start: 20200422, end: 20200505
  48. RETINOL [Concomitant]
     Active Substance: RETINOL
     Route: 065
     Dates: start: 20170329, end: 20210615
  49. LOVENOX [Concomitant]
     Active Substance: ENOXAPARIN SODIUM
     Route: 065
     Dates: start: 20170224, end: 20171130
  50. SCOTTOPECT [Concomitant]
  51. PANTOPRAZOLE SODIUM [Concomitant]
     Active Substance: PANTOPRAZOLE SODIUM
     Route: 065
     Dates: start: 20170722, end: 20180327
  52. PANTOPRAZOLE SODIUM [Concomitant]
     Active Substance: PANTOPRAZOLE SODIUM
     Route: 065
     Dates: start: 20200506, end: 20200519
  53. PARACODIN [Concomitant]
  54. DRONABINOL [Concomitant]
     Active Substance: DRONABINOL
  55. ZIEXTENZO [Concomitant]
     Active Substance: PEGFILGRASTIM-BMEZ
  56. POLYETHYLENE GLYCOL 3350\POTASSIUM CHLORIDE\SODIUM BICARBONATE\SODIUM [Concomitant]
     Active Substance: POLYETHYLENE GLYCOL 3350\POTASSIUM CHLORIDE\SODIUM BICARBONATE\SODIUM CHLORIDE
  57. HALSET [Concomitant]
  58. DEXAMETHASONE [Concomitant]
     Active Substance: DEXAMETHASONE
     Dates: start: 20171004, end: 20171006
  59. DEXAMETHASONE [Concomitant]
     Active Substance: DEXAMETHASONE
     Dosage: ONGOING = NOT CHECKED
     Dates: start: 20171007, end: 20171008
  60. DEXAMETHASONE [Concomitant]
     Active Substance: DEXAMETHASONE
     Route: 065
     Dates: start: 20170104, end: 20170106
  61. DEXAMETHASONE [Concomitant]
     Active Substance: DEXAMETHASONE
     Route: 065
     Dates: start: 20170107, end: 20170108
  62. FENTANYL [Concomitant]
     Active Substance: FENTANYL
     Route: 050
     Dates: start: 20200515
  63. EMEND [Concomitant]
     Active Substance: APREPITANT
     Route: 065
     Dates: start: 20200428, end: 20200430
  64. PONVERIDOL [Concomitant]
  65. FUROSEMIDE [Concomitant]
     Active Substance: FUROSEMIDE
     Route: 065
     Dates: start: 20170810, end: 20171213
  66. FUROSEMIDE [Concomitant]
     Active Substance: FUROSEMIDE
     Dosage: ONGOING = NOT CHECKED
     Route: 065
     Dates: start: 20170810, end: 20171213
  67. TEMESTA [Concomitant]
  68. ALPRAZOLAM [Concomitant]
     Active Substance: ALPRAZOLAM
  69. ONDANSETRON [Concomitant]
     Active Substance: ONDANSETRON
  70. BUTYLSCOPOLAMINE BROMIDE [Concomitant]
     Active Substance: BUTYLSCOPOLAMINE BROMIDE
  71. MORPHINE [Concomitant]
     Active Substance: MORPHINE

REACTIONS (17)
  - Streptococcal sepsis [Recovered/Resolved]
  - Pseudomonal sepsis [Recovered/Resolved]
  - Brain oedema [Not Recovered/Not Resolved]
  - Vascular device infection [Recovered/Resolved]
  - Fatigue [Recovered/Resolved]
  - C-reactive protein increased [Not Recovered/Not Resolved]
  - Candida infection [Not Recovered/Not Resolved]
  - Paronychia [Recovered/Resolved]
  - Eczema [Not Recovered/Not Resolved]
  - Varicose vein [Not Recovered/Not Resolved]
  - Back pain [Recovered/Resolved]
  - Nausea [Recovered/Resolved]
  - Vomiting [Recovered/Resolved]
  - Vascular device infection [Recovered/Resolved]
  - Nasal mucosal disorder [Recovered/Resolved]
  - Skin fissures [Recovered/Resolved]
  - Pleural effusion [Recovered/Resolved]

NARRATIVE: CASE EVENT DATE: 20191101
